FAERS Safety Report 8966076 (Version 2)
Quarter: 2013Q2

REPORT INFORMATION
  Report Type: Spontaneous
  Country: US (occurrence: US)
  Receive Date: 20121217
  Receipt Date: 20130627
  Transmission Date: 20140414
  Serious: No
  Sender: FDA-Public Use
  Company Number: US-PFIZER INC-2012267418

PATIENT
  Age: 51 Year
  Sex: Female
  Weight: 75 kg

DRUGS (8)
  1. PREMPRO [Suspect]
     Indication: HORMONE REPLACEMENT THERAPY
     Dosage: 1 DF (0.625MG/5MG), DAILY
     Route: 048
     Dates: start: 2005, end: 20121012
  2. PRISTIQ [Concomitant]
     Dosage: 100 MG (1 TABLET), DAILY
     Route: 048
  3. LOPRESSOR [Concomitant]
     Dosage: UNK
  4. ADDERALL [Concomitant]
     Dosage: UNK
  5. VALIUM [Concomitant]
     Dosage: UNK
  6. MAXZIDE [Concomitant]
     Dosage: UNK
  7. LORTAB [Concomitant]
     Dosage: UNK
  8. PERCOCET [Concomitant]
     Dosage: UNK

REACTIONS (3)
  - Feeling hot [Not Recovered/Not Resolved]
  - Burning sensation [Not Recovered/Not Resolved]
  - Feeling abnormal [Not Recovered/Not Resolved]
